FAERS Safety Report 8436906-6 (Version None)
Quarter: 2012Q2

REPORT INFORMATION
  Report Type: 
  Country: None (occurrence: None)
  Receive Date: 20120614
  Receipt Date: 20120604
  Transmission Date: 20120825
  Serious: No
  Sender: FDA-Public Use
  Company Number: US-ASTRAZENECA-2012SE37470

PATIENT
  Age: 61 Year
  Sex: Female

DRUGS (10)
  1. METOPROLOL TARTRATE [Suspect]
     Route: 065
  2. ISOSORBIDE DINITRATE [Concomitant]
  3. ZETIA [Concomitant]
  4. CRESTOR [Suspect]
     Route: 048
  5. FAMOTIDINE [Concomitant]
  6. TRILIPIX [Suspect]
     Route: 065
  7. ASPIRIN [Concomitant]
  8. METFORMIN HCL [Concomitant]
  9. FISH OIL [Concomitant]
  10. GABAPENTIN [Concomitant]

REACTIONS (2)
  - HYPERSENSITIVITY [None]
  - DYSPNOEA [None]
